FAERS Safety Report 5807909-2 (Version None)
Quarter: 2008Q3

REPORT INFORMATION
  Report Type: 
  Country: None (occurrence: None)
  Receive Date: 20080711
  Receipt Date: 20080630
  Transmission Date: 20090109
  Serious: Yes (Other)
  Sender: FDA-Public Use
  Company Number: FR-PFIZER INC-2008030107

PATIENT
  Age: 55 Year
  Sex: Female

DRUGS (5)
  1. NEURONTIN [Suspect]
     Indication: EPILEPSY
     Dosage: DAILY DOSE:900MG
  2. VANCOMYCIN HYDROCHLORIDE [Concomitant]
  3. ALL OTHER THERAPEUTIC PRODUCTS [Concomitant]
  4. AMIKACIN [Concomitant]
  5. MERONEM [Concomitant]

REACTIONS (9)
  - CHOLESTASIS [None]
  - CYTOLYTIC HEPATITIS [None]
  - DRUG TOXICITY [None]
  - EOSINOPHILIA [None]
  - FACE OEDEMA [None]
  - HYPERTHERMIA [None]
  - LYMPHOCYTOSIS [None]
  - RASH MACULO-PAPULAR [None]
  - SKIN LESION [None]
